FAERS Safety Report 9557919 (Version 2)
Quarter: 2014Q1

REPORT INFORMATION
  Report Type: Spontaneous
  Country: US (occurrence: US)
  Receive Date: 20130926
  Receipt Date: 20140219
  Transmission Date: 20141002
  Serious: Yes (Other)
  Sender: FDA-Public Use
  Company Number: US-BRISTOL-MYERS SQUIBB COMPANY-19385400

PATIENT
  Age: 73 Year
  Sex: Female
  Weight: 58.96 kg

DRUGS (7)
  1. BARACLUDE TABS [Suspect]
     Indication: HEPATITIS B
     Dosage: 2013-0.5MG/D
     Dates: start: 2013
  2. CLIMARA [Concomitant]
     Dosage: PATCH
  3. NORCO [Concomitant]
  4. DIAZEPAM [Concomitant]
  5. PROTONIX [Concomitant]
  6. RANITIDINE [Concomitant]
  7. ALLEGRA [Concomitant]

REACTIONS (11)
  - Duodenal ulcer [Unknown]
  - Oesophagitis [Unknown]
  - Helicobacter test positive [Unknown]
  - Amnesia [Unknown]
  - Osteoarthritis [Unknown]
  - Incorrect dose administered [Unknown]
  - Faeces discoloured [Unknown]
  - Chromaturia [Unknown]
  - Weight decreased [Unknown]
  - Alopecia [Unknown]
  - Decreased appetite [Unknown]
